FAERS Safety Report 10980342 (Version 2)
Quarter: 2015Q2

REPORT INFORMATION
  Report Type: Spontaneous
  Country: US (occurrence: US)
  Receive Date: 20150402
  Receipt Date: 20150525
  Transmission Date: 20150821
  Serious: No
  Sender: FDA-Public Use
  Company Number: US-JNJFOC-20130805854

PATIENT
  Age: 67 Year
  Sex: Female
  Weight: 54.43 kg

DRUGS (6)
  1. BYSTOLIC [Concomitant]
     Active Substance: NEBIVOLOL HYDROCHLORIDE
     Indication: HYPERTENSION
     Route: 065
     Dates: start: 20130529
  2. IMODIUM MULTI-SYMPTOM RELIEF [Suspect]
     Active Substance: DIMETHICONE\LOPERAMIDE HYDROCHLORIDE
     Route: 048
  3. IMODIUM MULTI-SYMPTOM RELIEF [Suspect]
     Active Substance: DIMETHICONE\LOPERAMIDE HYDROCHLORIDE
     Indication: DIARRHOEA
     Route: 048
  4. FLORASTOR [Concomitant]
     Active Substance: SACCHAROMYCES CEREVISIAE
     Indication: NUTRITIONAL SUPPLEMENTATION
     Dosage: 2 DAILY
     Route: 065
     Dates: start: 2012
  5. PREMARIN [Concomitant]
     Active Substance: ESTROGENS, CONJUGATED
     Indication: BLOOD OESTROGEN
     Dosage: 10-15YEARS
     Route: 065
  6. XARELTO [Concomitant]
     Active Substance: RIVAROXABAN
     Indication: THROMBOSIS PROPHYLAXIS
     Route: 065

REACTIONS (3)
  - Dysphagia [Recovered/Resolved]
  - Product size issue [Unknown]
  - Wrong technique in drug usage process [Unknown]

NARRATIVE: CASE EVENT DATE: 20130809
